FAERS Safety Report 8407569-0 (Version None)
Quarter: 2012Q2

REPORT INFORMATION
  Report Type: 
  Country: None (occurrence: None)
  Receive Date: 20120529
  Receipt Date: 19960828
  Transmission Date: 20120825
  Serious: Yes (Other)
  Sender: FDA-Public Use
  Company Number: 002498

PATIENT
  Age: 36 Year
  Sex: Female

DRUGS (5)
  1. CARBAMAZEPINE [Concomitant]
  2. PLETAL [Suspect]
     Dosage: 100 MG, DAILY DOSE, ORAL
     Route: 048
     Dates: start: 19960709, end: 19960710
  3. FURSULTIAMINE [Concomitant]
  4. SODIUM AZULENE SULFONATE L-GLUTAMINE (SODIUM AZULENE SULFONATE_ L=GLUT [Concomitant]
  5. DIAZEPAM [Concomitant]

REACTIONS (3)
  - LYMPHADENOPATHY [None]
  - RASH [None]
  - OCULOMUCOCUTANEOUS SYNDROME [None]
